FAERS Safety Report 5083036-X (Version None)
Quarter: 2006Q3

REPORT INFORMATION
  Report Type: 
  Country: None (occurrence: None)
  Receive Date: 20060814
  Receipt Date: 20060801
  Transmission Date: 20061208
  Serious: Yes (Hospitalization)
  Sender: FDA-Public Use
  Company Number: 2006094980

PATIENT
  Age: 47 Year
  Sex: Female
  Weight: 72 kg

DRUGS (5)
  1. SOLU-MEDROL [Suspect]
     Indication: DRUG USE FOR UNKNOWN INDICATION
     Dosage: 1 GRAM (1 IN 1 D), INTRAVENOUS
     Route: 042
     Dates: start: 20060403, end: 20060407
  2. GABAPENTIN [Concomitant]
  3. ZOPICLONE (ZOPICLONE) [Concomitant]
  4. LEVOCARNITINE (LEVOCARNITINE) [Concomitant]
  5. ZESTORETIC [Concomitant]

REACTIONS (3)
  - ERYSIPELAS [None]
  - INFECTION [None]
  - SKIN DISORDER [None]
